FAERS Safety Report 15070214 (Version 2)
Quarter: 2019Q2

REPORT INFORMATION
  Report Type: Spontaneous
  Country: FR (occurrence: FR)
  Receive Date: 20180626
  Receipt Date: 20190405
  Transmission Date: 20190711
  Serious: Yes (Other)
  Sender: FDA-Public Use
  Company Number: FR-MYLANLABS-2018M1044445

PATIENT
  Age: 85 Year
  Sex: Male

DRUGS (1)
  1. MORPHINE [Suspect]
     Active Substance: MORPHINE
     Indication: WOUND COMPLICATION
     Dosage: UNK, QD, HIGH DOSES

REACTIONS (2)
  - Hallucination [Unknown]
  - Delirium [Unknown]
